FAERS Safety Report 4740247-8 (Version None)
Quarter: 2005Q3

REPORT INFORMATION
  Report Type: 
  Country: None (occurrence: None)
  Receive Date: 20050810
  Receipt Date: 20050309
  Transmission Date: 20060218
  Serious: Yes (Other)
  Sender: FDA-Public Use
  Company Number: US-GLAXOSMITHKLINE-A0549017A

PATIENT
  Age: 89 Year
  Sex: Female

DRUGS (3)
  1. PAROXETINE HCL [Suspect]
     Indication: DEPRESSION
     Route: 048
     Dates: start: 20050101
  2. SEROQUEL [Concomitant]
  3. BLOOD THINNER [Concomitant]

REACTIONS (1)
  - HALLUCINATION [None]
